FAERS Safety Report 25912709 (Version 1)
Quarter: 2025Q4

REPORT INFORMATION
  Report Type: Spontaneous
  Country: US (occurrence: US)
  Receive Date: 20251013
  Receipt Date: 20251013
  Transmission Date: 20260117
  Serious: Yes (Hospitalization, Other)
  Sender: UNICHEM
  Company Number: US-UNICHEM LABORATORIES LIMITED-UNI-2025-US-003499

PATIENT

DRUGS (2)
  1. CLONIDINE [Suspect]
     Active Substance: CLONIDINE
     Indication: Hormone therapy
     Dosage: 90 MICROGRAM
     Route: 048
  2. ARGININE [Suspect]
     Active Substance: ARGININE
     Indication: Hormone therapy
     Dosage: 9 GRAM (10 PERCENT)
     Route: 042

REACTIONS (2)
  - Urinary bladder haemorrhage [Recovering/Resolving]
  - Haematuria [Recovering/Resolving]
